FAERS Safety Report 23070431 (Version 1)
Quarter: 2023Q4

REPORT INFORMATION
  Report Type: Report from Study
  Country: DE (occurrence: DE)
  Receive Date: 20231016
  Receipt Date: 20231016
  Transmission Date: 20240110
  Serious: Yes (Other)
  Sender: FDA-Public Use
  Company Number: DE-MYLANLABS-2023M1076217

PATIENT
  Sex: Female

DRUGS (1)
  1. GLATIRAMER [Suspect]
     Active Substance: GLATIRAMER
     Indication: Multiple sclerosis
     Dosage: 40 MILLIGRAM PER MILLILITRE
     Route: 065
     Dates: start: 20230424

REACTIONS (5)
  - Mental impairment [Not Recovered/Not Resolved]
  - Burning sensation [Unknown]
  - Discomfort [Unknown]
  - Depressed mood [Not Recovered/Not Resolved]
  - Injection site pain [Unknown]

NARRATIVE: CASE EVENT DATE: 20230713
